FAERS Safety Report 8382505-4 (Version None)
Quarter: 2012Q2

REPORT INFORMATION
  Report Type: 
  Country: None (occurrence: None)
  Receive Date: 20120524
  Receipt Date: 20120522
  Transmission Date: 20120825
  Serious: Yes (Life-Threatening, Hospitalization)
  Sender: FDA-Public Use
  Company Number: PHHY2012FR026236

PATIENT
  Sex: Female

DRUGS (3)
  1. NEBIVOLOL HCL [Concomitant]
  2. FLECAINIDE ACETATE [Concomitant]
  3. ZOLEDRONOC ACID [Suspect]
     Indication: OSTEOPOROSIS
     Route: 042
     Dates: start: 20110725

REACTIONS (4)
  - DYSPNOEA [None]
  - PULMONARY EMBOLISM [None]
  - HAEMOPTYSIS [None]
  - PAIN IN EXTREMITY [None]
